FAERS Safety Report 6198422-4 (Version None)
Quarter: 2009Q2

REPORT INFORMATION
  Report Type: 
  Country: None (occurrence: None)
  Receive Date: 20090519
  Receipt Date: 20090506
  Transmission Date: 20091009
  Serious: Yes (Hospitalization)
  Sender: FDA-Public Use
  Company Number: 235107K09USA

PATIENT
  Age: 32 Year
  Sex: Female

DRUGS (4)
  1. REBIF [Suspect]
     Indication: MULTIPLE SCLEROSIS
     Dosage: 44 MCG, 3 IN 1 WEEKS, SUBCUTANEOUS
     Route: 058
     Dates: start: 20090216
  2. LEXAPRO [Concomitant]
  3. TRAZODONE HCL [Concomitant]
  4. STOOL SOFTNER (DOCUSATE SODIUM) [Concomitant]

REACTIONS (5)
  - CHEST PAIN [None]
  - CHOLECYSTITIS INFECTIVE [None]
  - CHOLELITHIASIS [None]
  - FLATULENCE [None]
  - PANCREATITIS [None]
